FAERS Safety Report 23597600 (Version 2)
Quarter: 2024Q1

REPORT INFORMATION
  Report Type: Spontaneous
  Country: CA (occurrence: CA)
  Receive Date: 20240305
  Receipt Date: 20240328
  Transmission Date: 20240409
  Serious: Yes (Death)
  Sender: FDA-Public Use
  Company Number: CA-GENMAB-2024-00690

PATIENT
  Age: 65 Year
  Sex: Male
  Weight: 74 kg

DRUGS (1)
  1. EPCORITAMAB [Suspect]
     Active Substance: EPCORITAMAB
     Indication: Diffuse large B-cell lymphoma
     Dosage: 48 MG IN 0.8 ML VIAL, FREQUENCY: CYCLE 4: ONCE EVERY 2 WEEKS FREQUENCY: FREQUENCY: CYCLE 4: 48 MG ON
     Route: 058
     Dates: start: 20231110, end: 20240216

REACTIONS (3)
  - Hepatotoxicity [Fatal]
  - Thrombocytopenia [Fatal]
  - Abdominal pain [Unknown]

NARRATIVE: CASE EVENT DATE: 20240130
